FAERS Safety Report 4605724-9 (Version None)
Quarter: 2005Q1

REPORT INFORMATION
  Report Type: 
  Country: None (occurrence: None)
  Receive Date: 20050214
  Receipt Date: 20041230
  Transmission Date: 20050727
  Serious: No
  Sender: FDA-Public Use
  Company Number: USA041287171

PATIENT
  Sex: Male

DRUGS (2)
  1. CIALIS [Suspect]
     Dosage: 10 MG
  2. FLOMAX MR9TAMSULOSIN HYDROCHLORIDE) [Concomitant]

REACTIONS (2)
  - BACK PAIN [None]
  - PENIS DISORDER [None]
